FAERS Safety Report 4502643-3 (Version None)
Quarter: 2004Q4

REPORT INFORMATION
  Report Type: 
  Country: None (occurrence: None)
  Receive Date: 20041110
  Receipt Date: 20041008
  Transmission Date: 20050328
  Serious: Yes (Life-Threatening)
  Sender: FDA-Public Use
  Company Number: 8991

PATIENT
  Age: 7 Year
  Sex: Male

DRUGS (5)
  1. METHOTREXATE [Suspect]
     Indication: PROPHYLAXIS AGAINST TRANSPLANT REJECTION
     Dosage: IV
     Route: 042
  2. BUSULPHAN [Suspect]
     Indication: CORD BLOOD TRANSPLANT THERAPY
     Dosage: PO
     Route: 048
  3. CYCLOPHOSPHAMIDE [Concomitant]
  4. ANTITHYMOCYTE GLOBULIN [Concomitant]
  5. TACROLIMUS [Concomitant]

REACTIONS (1)
  - LYMPHOPROLIFERATIVE DISORDER [None]
